FAERS Safety Report 6353314-2 (Version None)
Quarter: 2009Q3

REPORT INFORMATION
  Report Type: 
  Country: None (occurrence: None)
  Receive Date: 20090912
  Receipt Date: 20090622
  Transmission Date: 20100115
  Serious: No
  Sender: FDA-Public Use
  Company Number: US-ABBOTT-08P-163-0459690-00

PATIENT
  Sex: Male
  Weight: 72.64 kg

DRUGS (4)
  1. HUMIRA [Suspect]
     Indication: PSORIASIS
     Dates: start: 20080516
  2. RAMIPRIL [Concomitant]
     Indication: BLOOD PRESSURE
     Route: 048
  3. ASPIRIN [Concomitant]
     Indication: ANTICOAGULANT THERAPY
     Route: 048
  4. ATORVASTATIN CALCIUM [Concomitant]
     Indication: BLOOD CHOLESTEROL
     Route: 048

REACTIONS (4)
  - INCORRECT DOSE ADMINISTERED [None]
  - INJECTION SITE EXTRAVASATION [None]
  - INJECTION SITE PAIN [None]
  - WRONG TECHNIQUE IN DRUG USAGE PROCESS [None]
